FAERS Safety Report 9460859 (Version 1)
Quarter: 2013Q3

REPORT INFORMATION
  Report Type: Spontaneous
  Country: US (occurrence: US)
  Receive Date: 20130816
  Receipt Date: 20130816
  Transmission Date: 20140515
  Serious: No
  Sender: FDA-Public Use
  Company Number: US-009507513-1308USA005915

PATIENT
  Age: 63 Year
  Sex: Female

DRUGS (2)
  1. PEGINTRON [Suspect]
     Indication: HEPATITIS C
     Dosage: UNKNOWN, VIAL
     Dates: start: 20130709
  2. REBETOL [Suspect]
     Indication: HEPATITIS C
     Dosage: UNKNOWN
     Route: 048
     Dates: start: 20130708

REACTIONS (3)
  - Asthenia [Unknown]
  - Dizziness [Unknown]
  - Dyspnoea [Unknown]
